FAERS Safety Report 5105374-4 (Version None)
Quarter: 2006Q3

REPORT INFORMATION
  Report Type: 
  Country: None (occurrence: None)
  Receive Date: 20060731
  Receipt Date: 20060123
  Transmission Date: 20061208
  Serious: Yes (Other)
  Sender: FDA-Public Use
  Company Number: US-JNJFOC-20051204210

PATIENT
  Age: 52 Year
  Sex: Female
  Weight: 77.1115 kg

DRUGS (10)
  1. RISPERDAL [Suspect]
     Indication: BIPOLAR DISORDER
     Dosage: 1 MG, 2 IN 1 DAY, ORAL
     Route: 048
     Dates: start: 20040701, end: 20050701
  2. LITHIUM (LITHIUM) [Concomitant]
  3. ^BLOOD PRESSURE PATCH^ (ALL OTHER THERAPEUTIC PRODUCTS) [Concomitant]
  4. NEURONTIN [Concomitant]
  5. REMERON [Concomitant]
  6. CLONAZEPAM [Concomitant]
  7. AMBIEN [Concomitant]
  8. PAXIL [Concomitant]
  9. ^BIACT^ (ALL OTHER THERAPEUTIC PRODUCTS) [Concomitant]
  10. HORMONE REPLACEMENT THERAPY [Concomitant]

REACTIONS (4)
  - CHOLELITHIASIS [None]
  - JOINT SWELLING [None]
  - PANCREATITIS [None]
  - WEIGHT INCREASED [None]
